FAERS Safety Report 17436018 (Version 1)
Quarter: 2020Q1

REPORT INFORMATION
  Report Type: Spontaneous
  Country: DE (occurrence: DE)
  Receive Date: 20200219
  Receipt Date: 20200219
  Transmission Date: 20200409
  Serious: Yes (Hospitalization, Other)
  Sender: FDA-Public Use
  Company Number: DE-ASTRAZENECA-2020SE22616

PATIENT
  Sex: Male

DRUGS (11)
  1. CRESTOR [Suspect]
     Active Substance: ROSUVASTATIN CALCIUM
     Indication: HYPERCHOLESTEROLAEMIA
     Dosage: 10.0MG UNKNOWN
     Route: 048
     Dates: start: 201803
  2. ALLOPURINOL. [Concomitant]
     Active Substance: ALLOPURINOL
  3. SITAGLIPTIN [Concomitant]
     Active Substance: SITAGLIPTIN
  4. INSULIN LISPRO HUMALOG [Concomitant]
  5. ACETYLSALICYLIC ACID [Concomitant]
     Active Substance: ASPIRIN
  6. INSULIN GLARGIN [Concomitant]
     Active Substance: INSULIN GLARGINE
  7. ANTRA MUPS [Suspect]
     Active Substance: OMEPRAZOLE MAGNESIUM
     Dosage: 20.0MG UNKNOWN
     Route: 048
  8. CRESTOR [Suspect]
     Active Substance: ROSUVASTATIN CALCIUM
     Indication: HYPERCHOLESTEROLAEMIA
     Dosage: 5.0MG UNKNOWN
     Route: 048
  9. NEBIVOLOL. [Concomitant]
     Active Substance: NEBIVOLOL
  10. IRBESARTAN. [Concomitant]
     Active Substance: IRBESARTAN
  11. L-THYROX [Concomitant]
     Active Substance: LEVOTHYROXINE SODIUM

REACTIONS (6)
  - Pain in extremity [Unknown]
  - Paresis [Unknown]
  - Pain [Unknown]
  - Paralysis [Unknown]
  - Blood creatine phosphokinase increased [Unknown]
  - Bleeding time prolonged [Unknown]
